FAERS Safety Report 10589074 (Version 1)
Quarter: 2014Q4

REPORT INFORMATION
  Report Type: Spontaneous
  Country: CN (occurrence: CN)
  Receive Date: 20141118
  Receipt Date: 20141118
  Transmission Date: 20150529
  Serious: Yes (Other)
  Sender: FDA-Public Use
  Company Number: CN-ASTRAZENECA-2014SE86871

PATIENT
  Age: 293 Day
  Sex: Female
  Weight: 8 kg

DRUGS (5)
  1. SODIUM BICARBONATE. [Concomitant]
     Active Substance: SODIUM BICARBONATE
     Indication: BRONCHOPNEUMONIA
     Route: 041
     Dates: start: 20140423, end: 20140423
  2. BUDESONIDE. [Suspect]
     Active Substance: BUDESONIDE
     Indication: BRONCHOPNEUMONIA
     Dosage: 1ML (2.5MG), DAILY
     Route: 055
     Dates: start: 20140423, end: 20140423
  3. ERYTHROMYCIN LACTOBIONATE [Concomitant]
     Active Substance: ERYTHROMYCIN LACTOBIONATE
     Indication: BRONCHOPNEUMONIA
     Route: 041
     Dates: start: 20140423, end: 20140423
  4. AMBROXOL HYDROCHLORIDE [Concomitant]
     Active Substance: AMBROXOL HYDROCHLORIDE
     Indication: BRONCHOPNEUMONIA
     Route: 041
     Dates: start: 20140423, end: 20140423
  5. TERBUTALINE SULFATE. [Suspect]
     Active Substance: TERBUTALINE SULFATE
     Indication: BRONCHOPNEUMONIA
     Dosage: 1ML (2.5MG), DAILY
     Route: 055
     Dates: start: 20140423, end: 20140423

REACTIONS (9)
  - Tic [Recovering/Resolving]
  - Foaming at mouth [Recovering/Resolving]
  - Swelling [Unknown]
  - Agitation [Unknown]
  - Confusional state [Recovering/Resolving]
  - Seizure [Unknown]
  - Cyanosis [Recovering/Resolving]
  - Coma [Recovering/Resolving]
  - Crying [Unknown]

NARRATIVE: CASE EVENT DATE: 20140423
